FAERS Safety Report 9900371 (Version 2)
Quarter: 2014Q3

REPORT INFORMATION
  Report Type: Spontaneous
  Country: US (occurrence: US)
  Receive Date: 20140216
  Receipt Date: 20140820
  Transmission Date: 20150326
  Serious: Yes (Hospitalization, Other)
  Sender: FDA-Public Use
  Company Number: US-009507513-1402USA007251

PATIENT
  Sex: Female
  Weight: 65.9 kg

DRUGS (2)
  1. NUVARING [Suspect]
     Active Substance: ETHINYL ESTRADIOL\ETONOGESTREL
     Indication: CONTRACEPTION
     Dosage: USE FOR 3 WEEKS, THEN OFF FOR 1 WEEK
     Route: 067
     Dates: start: 20130101, end: 20131016
  2. NUVARING [Suspect]
     Active Substance: ETHINYL ESTRADIOL\ETONOGESTREL
     Indication: ENDOMETRIOSIS

REACTIONS (5)
  - Deep vein thrombosis [Unknown]
  - Pulmonary embolism [Unknown]
  - Antiphospholipid antibodies positive [Unknown]
  - Antiphospholipid syndrome [Unknown]
  - Off label use [Unknown]

NARRATIVE: CASE EVENT DATE: 20131015
